FAERS Safety Report 17495695 (Version 2)
Quarter: 2020Q1

REPORT INFORMATION
  Report Type: Spontaneous
  Country: US (occurrence: US)
  Receive Date: 20200304
  Receipt Date: 20200305
  Transmission Date: 20200409
  Serious: No
  Sender: FDA-Public Use
  Company Number: US-PFIZER INC-2020095459

PATIENT
  Sex: Female

DRUGS (1)
  1. ZITHROMAX [Suspect]
     Active Substance: AZITHROMYCIN DIHYDRATE
     Indication: ROOT CANAL INFECTION
     Dosage: UNK

REACTIONS (4)
  - Headache [Unknown]
  - Respiratory disorder [Unknown]
  - Swelling face [Unknown]
  - Influenza like illness [Unknown]
